FAERS Safety Report 5601878-6 (Version None)
Quarter: 2008Q1

REPORT INFORMATION
  Report Type: 
  Country: None (occurrence: None)
  Receive Date: 20080124
  Receipt Date: 20080112
  Transmission Date: 20080703
  Serious: Yes (Hospitalization, Other)
  Sender: FDA-Public Use
  Company Number: US-PFIZER INC-2008005094

PATIENT
  Sex: Female
  Weight: 89.09 kg

DRUGS (6)
  1. CHANTIX [Suspect]
     Indication: SMOKING CESSATION THERAPY
     Dates: start: 20070301, end: 20070101
  2. MIRAPEX [Concomitant]
  3. METFORMIN HCL [Concomitant]
  4. PREMARIN [Concomitant]
  5. ZOCOR [Concomitant]
  6. AMOXICILLIN [Concomitant]

REACTIONS (4)
  - ELECTROLYTE IMBALANCE [None]
  - GASTROINTESTINAL HAEMORRHAGE [None]
  - MALLORY-WEISS SYNDROME [None]
  - VOMITING [None]
